FAERS Safety Report 9705720 (Version 1)
Quarter: 2013Q4

REPORT INFORMATION
  Report Type: Spontaneous
  Country: US (occurrence: US)
  Receive Date: 20131122
  Receipt Date: 20131122
  Transmission Date: 20140711
  Serious: No
  Sender: FDA-Public Use
  Company Number: US-GILEAD-2008-0017799

PATIENT
  Sex: Male
  Weight: 108.86 kg

DRUGS (10)
  1. LETAIRIS [Suspect]
     Indication: PULMONARY ARTERIAL HYPERTENSION
     Route: 048
     Dates: start: 20080714
  2. HYZAAR [Concomitant]
     Dosage: AS DIRECTED
     Route: 048
  3. ZOCOR [Concomitant]
     Dosage: AS DIRECTED
     Route: 048
  4. GLIPIZIDE [Concomitant]
     Dosage: AS DIRECTED
     Route: 048
  5. REVATIO [Concomitant]
     Dosage: AS DIRECTED
     Route: 048
  6. METFORMIN [Concomitant]
     Dosage: AS DIRECTED
     Route: 048
  7. VALIUM [Concomitant]
     Dosage: AS DIRECTED
     Route: 048
  8. METOPROLOL [Concomitant]
     Dosage: AS DIRECTED
     Route: 048
  9. BYETTA [Concomitant]
     Dosage: AS DIRECTED
     Route: 058
  10. TASPRIN [Concomitant]
     Route: 048

REACTIONS (1)
  - Constipation [None]
